FAERS Safety Report 9567729 (Version 3)
Quarter: 2014Q1

REPORT INFORMATION
  Report Type: Spontaneous
  Country: US (occurrence: US)
  Receive Date: 20130930
  Receipt Date: 20140226
  Transmission Date: 20141002
  Serious: Yes (Other)
  Sender: FDA-Public Use
  Company Number: US-AMGEN-USASP2013027085

PATIENT
  Age: 51 Year
  Sex: Female
  Weight: 95.23 kg

DRUGS (7)
  1. ENBREL [Suspect]
     Indication: PSORIATIC ARTHROPATHY
     Dosage: 50 MG, QWK
     Route: 058
     Dates: start: 201302, end: 20130515
  2. ENBREL [Suspect]
     Indication: RHEUMATOID ARTHRITIS
  3. MELOXICAM [Concomitant]
     Dosage: 15 MG, UNK
  4. DIOVAN [Concomitant]
     Dosage: 160 MG, UNK
  5. B COMPLEX                          /00322001/ [Concomitant]
     Dosage: UNK
  6. FISH OIL [Concomitant]
     Dosage: UNK
  7. MULTIVITAMINS, PLAIN [Concomitant]
     Dosage: UNK

REACTIONS (2)
  - Otitis media [Recovered/Resolved]
  - Nasopharyngitis [Recovered/Resolved]
